FAERS Safety Report 9226120 (Version 1)
Quarter: 2013Q2

REPORT INFORMATION
  Report Type: Spontaneous
  Country: CA (occurrence: CA)
  Receive Date: 20130411
  Receipt Date: 20130411
  Transmission Date: 20140414
  Serious: Yes (Other)
  Sender: FDA-Public Use
  Company Number: CA-009507513-1304CAN005313

PATIENT
  Sex: Male
  Weight: 90.7 kg

DRUGS (7)
  1. VICTRELIS [Suspect]
     Indication: HEPATITIS C
     Dosage: 1200 MG, UNK
     Route: 048
     Dates: start: 20121112, end: 20130128
  2. PEGETRON [Suspect]
     Indication: HEPATITIS C
     Dosage: 150 MICROGRAM, UNK
     Route: 058
     Dates: start: 20121112, end: 20130128
  3. PEGETRON [Suspect]
     Dosage: 2400 MG, UNK
     Route: 048
     Dates: start: 20121112, end: 20130128
  4. CYMBALTA [Concomitant]
     Indication: PRODUCT USED FOR UNKNOWN INDICATION
     Dosage: 60 MG, QD
  5. CELEBREX [Concomitant]
     Indication: PRODUCT USED FOR UNKNOWN INDICATION
     Dosage: 200 MG, PRN
  6. ORACORT [Concomitant]
     Indication: MOUTH ULCERATION
  7. DIOVAN [Concomitant]
     Indication: PRODUCT USED FOR UNKNOWN INDICATION
     Dosage: 80/125

REACTIONS (3)
  - Visual field defect [Not Recovered/Not Resolved]
  - Retinal haemorrhage [Not Recovered/Not Resolved]
  - Retinal exudates [Not Recovered/Not Resolved]
